FAERS Safety Report 9019824 (Version 1)
Quarter: 2013Q1

REPORT INFORMATION
  Report Type: Report from Study
  Country: US (occurrence: US)
  Receive Date: 20130118
  Receipt Date: 20130118
  Transmission Date: 20140127
  Serious: Yes (Other)
  Sender: FDA-Public Use
  Company Number: US-ABBOTT-13P-163-1034524-00

PATIENT
  Age: 61 Year
  Sex: Female

DRUGS (18)
  1. HUMIRA [Suspect]
     Indication: RHEUMATOID ARTHRITIS
  2. METFORMIN [Concomitant]
     Indication: DIABETES MELLITUS
  3. LANTUS [Concomitant]
     Indication: DIABETES MELLITUS
  4. HUMULIN [Concomitant]
     Indication: BLOOD GLUCOSE INCREASED
  5. LOTREL [Concomitant]
     Indication: HYPERTENSION
     Dosage: 5 TO 10MG DAILY
  6. HYDROCHLOROTHIAZIDE [Concomitant]
     Indication: BLOOD PRESSURE
  7. TRAMADOL [Concomitant]
     Indication: PAIN
     Dosage: 2 PILLS, 4 TIMES PER DAY
  8. NEXIUM [Concomitant]
     Indication: GASTROOESOPHAGEAL REFLUX DISEASE
  9. AMITRIPTYLINE [Concomitant]
     Indication: ANXIETY
  10. LORAZEPAM [Concomitant]
     Indication: ANXIETY
  11. REQUIP [Concomitant]
     Indication: RESTLESS LEGS SYNDROME
  12. ZOLPIDEM [Concomitant]
     Indication: INSOMNIA
     Dosage: AT BEDTIME
  13. SOMA [Concomitant]
     Indication: MUSCLE SPASMS
     Dosage: AT BEDTIME
  14. XOPENEX [Concomitant]
     Indication: PRODUCT USED FOR UNKNOWN INDICATION
     Dosage: INHALER, 2 PUFFS, EVERY 6 HOURS
     Route: 055
  15. ADVAIR [Concomitant]
     Indication: PRODUCT USED FOR UNKNOWN INDICATION
  16. FLONASE [Concomitant]
     Indication: PRODUCT USED FOR UNKNOWN INDICATION
  17. CELEXA [Concomitant]
     Indication: PRODUCT USED FOR UNKNOWN INDICATION
  18. REMICADE [Concomitant]
     Indication: PRODUCT USED FOR UNKNOWN INDICATION
     Dates: end: 2010

REACTIONS (11)
  - Respiratory arrest [Unknown]
  - Drug hypersensitivity [Unknown]
  - Rheumatoid arthritis [Unknown]
  - Finger deformity [Not Recovered/Not Resolved]
  - Pyrexia [Not Recovered/Not Resolved]
  - Generalised oedema [Not Recovered/Not Resolved]
  - Gait disturbance [Not Recovered/Not Resolved]
  - Carpal tunnel syndrome [Unknown]
  - Carpal tunnel syndrome [Unknown]
  - Knee arthroplasty [Unknown]
  - Asthma [Unknown]
